FAERS Safety Report 6485759-4 (Version None)
Quarter: 2009Q4

REPORT INFORMATION
  Report Type: 
  Country: None (occurrence: None)
  Receive Date: 20091204
  Receipt Date: 20091123
  Transmission Date: 20100525
  Serious: Yes (Other)
  Sender: FDA-Public Use
  Company Number: 8055096

PATIENT

DRUGS (1)
  1. KEPPRA [Suspect]
     Dosage: 2000 MG 2/D PO
     Route: 048

REACTIONS (1)
  - LEUKOPENIA [None]
